FAERS Safety Report 6672374-2 (Version None)
Quarter: 2010Q2

REPORT INFORMATION
  Report Type: 
  Country: None (occurrence: None)
  Receive Date: 20100408
  Receipt Date: 20100330
  Transmission Date: 20101027
  Serious: Yes (Hospitalization)
  Sender: FDA-Public Use
  Company Number: FR-JNJFOC-20100400147

PATIENT
  Sex: Male

DRUGS (6)
  1. HALDOL [Suspect]
     Indication: PSYCHIATRIC DECOMPENSATION
     Route: 030
  2. LOXAPAC [Suspect]
     Indication: PSYCHIATRIC DECOMPENSATION
     Route: 030
  3. SOLIAN [Suspect]
     Indication: PSYCHIATRIC DECOMPENSATION
     Route: 030
  4. NOZINAN [Suspect]
     Indication: PSYCHIATRIC DECOMPENSATION
     Route: 030
  5. VALIUM [Suspect]
     Indication: PSYCHIATRIC DECOMPENSATION
     Route: 030
  6. LOVENOX [Concomitant]
     Indication: THROMBOSIS PROPHYLAXIS
     Route: 058

REACTIONS (4)
  - BLOOD CREATINE PHOSPHOKINASE INCREASED [None]
  - C-REACTIVE PROTEIN INCREASED [None]
  - HYPERTHERMIA [None]
  - TACHYCARDIA [None]
